FAERS Safety Report 17917888 (Version 4)
Quarter: 2020Q3

REPORT INFORMATION
  Report Type: Spontaneous
  Country: PL (occurrence: PL)
  Receive Date: 20200619
  Receipt Date: 20200715
  Transmission Date: 20201103
  Serious: Yes (Hospitalization, Disabling, Other)
  Sender: FDA-Public Use
  Company Number: PL-PFIZER INC-2020237147

PATIENT
  Age: 68 Year
  Sex: Female

DRUGS (12)
  1. SODIUM PERCHLORATE [Suspect]
     Active Substance: SODIUM PERCHLORATE
     Dosage: 15 DROPS, 3X PER DAYUNK
     Route: 065
  2. METOPROLOL. [Suspect]
     Active Substance: METOPROLOL
     Dosage: 25 MG, 3X/DAY
  3. THIAMAZOLE [Suspect]
     Active Substance: METHIMAZOLE
     Dosage: 40 MG, TID
     Route: 042
  4. THIAMAZOLE [Suspect]
     Active Substance: METHIMAZOLE
     Dosage: 20 MG, TID
     Route: 048
  5. THIAMAZOLE [Suspect]
     Active Substance: METHIMAZOLE
     Dosage: 20 MG, QD
     Route: 065
  6. METOPROLOL. [Suspect]
     Active Substance: METOPROLOL
     Dosage: 200 MG, 1X/DAY
  7. SODIUM PERCHLORATE [Suspect]
     Active Substance: SODIUM PERCHLORATE
     Dosage: 10 DROPS, 3X PER DAY
     Route: 065
  8. HYDROCORTISONE. [Suspect]
     Active Substance: HYDROCORTISONE
     Dosage: 100 MG, QD
     Route: 042
  9. ACETYLSALICYLIC ACID [Suspect]
     Active Substance: ASPIRIN
     Dosage: 75 MG, QD
     Route: 065
  10. ROSUVASTATIN CALCIUM. [Suspect]
     Active Substance: ROSUVASTATIN CALCIUM
     Dosage: 10 MG, 1X/DAY
  11. RAMIPRIL. [Suspect]
     Active Substance: RAMIPRIL
     Dosage: 5 MG, 1X/DAY
  12. HYDROCORTISONE. [Suspect]
     Active Substance: HYDROCORTISONE
     Dosage: 100 MG, TID
     Route: 042

REACTIONS (9)
  - Extremity necrosis [Unknown]
  - Condition aggravated [Recovered/Resolved with Sequelae]
  - Peripheral ischaemia [Recovered/Resolved with Sequelae]
  - Psychomotor hyperactivity [Unknown]
  - Hyperthyroidism [Recovered/Resolved]
  - Thyroxine free increased [Recovering/Resolving]
  - Tri-iodothyronine free increased [Recovering/Resolving]
  - Tachycardia [Unknown]
  - Pain in extremity [Unknown]
